FAERS Safety Report 10089288 (Version 1)
Quarter: 2014Q2

REPORT INFORMATION
  Report Type: Spontaneous
  Country: US (occurrence: None)
  Receive Date: 20140418
  Receipt Date: 20140418
  Transmission Date: 20141212
  Serious: No
  Sender: FDA-Public Use
  Company Number: None

PATIENT
  Age: 51 Year
  Sex: Female
  Weight: 52.62 kg

DRUGS (1)
  1. ZYTREC 10 MG [Suspect]
     Indication: MULTIPLE ALLERGIES
     Dosage: 1 PILL ONCE DAILY TAKEN BY MOUTH?AROUND 15 YEARS
     Route: 048

REACTIONS (4)
  - Pruritus [None]
  - Contusion [None]
  - Withdrawal syndrome [None]
  - Product quality issue [None]
